FAERS Safety Report 6195535-8 (Version None)
Quarter: 2009Q2

REPORT INFORMATION
  Report Type: 
  Country: None (occurrence: None)
  Receive Date: 20090519
  Receipt Date: 20090508
  Transmission Date: 20091009
  Serious: Yes (Hospitalization)
  Sender: FDA-Public Use
  Company Number: PHHY2009MX17822

PATIENT
  Age: 57 Year
  Sex: Male

DRUGS (1)
  1. RASILEZ [Suspect]
     Indication: HYPERTENSION
     Dosage: 1 TABLET (150MG) PER DAY
     Dates: start: 20090429

REACTIONS (2)
  - DIALYSIS [None]
  - PULMONARY OEDEMA [None]
